FAERS Safety Report 6405465-1 (Version None)
Quarter: 2009Q4

REPORT INFORMATION
  Report Type: 
  Country: None (occurrence: None)
  Receive Date: 20091016
  Receipt Date: 20091016
  Transmission Date: 20100525
  Serious: Yes (Life-Threatening, Hospitalization, Disabling, Other)
  Sender: FDA-Public Use
  Company Number: None

PATIENT
  Age: 47 Year
  Sex: Female
  Weight: 63.5036 kg

DRUGS (2)
  1. DEPAKOTE [Suspect]
     Indication: BIPOLAR DISORDER
     Dosage: 3000. MG DAY
     Dates: start: 20040101
  2. DEPAKOTE [Suspect]
     Indication: BIPOLAR DISORDER
     Dosage: 3000. MG DAY
     Dates: start: 20090101

REACTIONS (2)
  - COMA [None]
  - CONVULSION [None]
